FAERS Safety Report 13568712 (Version 2)
Quarter: 2017Q2

REPORT INFORMATION
  Report Type: Spontaneous
  Country: US (occurrence: US)
  Receive Date: 20170522
  Receipt Date: 20170526
  Transmission Date: 20170830
  Serious: Yes (Hospitalization, Other)
  Sender: FDA-Public Use
  Company Number: US-PFIZER INC-2017220545

PATIENT
  Age: 58 Year
  Sex: Female

DRUGS (1)
  1. ATORVASTATIN CALCIUM. [Suspect]
     Active Substance: ATORVASTATIN CALCIUM
     Dosage: UNK

REACTIONS (9)
  - Reaction to drug excipients [Unknown]
  - Cardiac disorder [Unknown]
  - Stress [Unknown]
  - Apnoea [Unknown]
  - Asthma [Unknown]
  - Urticaria [Unknown]
  - Condition aggravated [Unknown]
  - Apparent death [Unknown]
  - Dyspnoea [Unknown]
